FAERS Safety Report 7107221-8 (Version None)
Quarter: 2010Q4

REPORT INFORMATION
  Report Type: 
  Country: None (occurrence: None)
  Receive Date: 20101116
  Receipt Date: 20100913
  Transmission Date: 20110411
  Serious: No
  Sender: FDA-Public Use
  Company Number: US-ABBOTT-10P-163-0671348-00

PATIENT
  Sex: Female
  Weight: 64.468 kg

DRUGS (10)
  1. SIMCOR [Suspect]
     Indication: BLOOD CHOLESTEROL INCREASED
     Dosage: 500/40, 1 IN 1 D
     Dates: start: 20100909
  2. ASPIRIN [Concomitant]
     Indication: PROPHYLAXIS
  3. VITAMIN E [Concomitant]
     Indication: VITAMIN SUPPLEMENTATION
  4. NIFEDIPINE [Concomitant]
     Indication: HYPERTENSION
  5. LISINOPRIL [Concomitant]
     Indication: HYPERTENSION
  6. ATENOLOL [Concomitant]
     Indication: HYPERTENSION
  7. EVISTA [Concomitant]
     Indication: OSTEOPOROSIS
  8. POLYETHYLENE GLYCOL [Concomitant]
     Indication: CONSTIPATION
  9. CLARITIN [Concomitant]
     Indication: PRODUCT USED FOR UNKNOWN INDICATION
  10. TYLENOL [Concomitant]
     Indication: PRODUCT USED FOR UNKNOWN INDICATION

REACTIONS (4)
  - CHEST PAIN [None]
  - FLUSHING [None]
  - GASTROOESOPHAGEAL REFLUX DISEASE [None]
  - MYALGIA [None]
